FAERS Safety Report 10191428 (Version 1)
Quarter: 2014Q2

REPORT INFORMATION
  Report Type: Spontaneous
  Country: IN (occurrence: None)
  Receive Date: 20140521
  Receipt Date: 20140521
  Transmission Date: 20141212
  Serious: Yes (Hospitalization)
  Sender: FDA-Public Use
  Company Number: ANI_2014_1381688

PATIENT
  Age: 31 Year
  Sex: Male

DRUGS (2)
  1. FLUVOXAMINE [Suspect]
     Indication: DEPRESSION
  2. CARBAMAZEPINE [Suspect]
     Indication: COMPLEX PARTIAL SEIZURES

REACTIONS (1)
  - Myoclonus [None]
